FAERS Safety Report 8176776-7 (Version None)
Quarter: 2012Q1

REPORT INFORMATION
  Report Type: 
  Country: None (occurrence: None)
  Receive Date: 20120301
  Receipt Date: 20120227
  Transmission Date: 20120608
  Serious: Yes (Death, Life-Threatening)
  Sender: FDA-Public Use
  Company Number: DE-B.I. PHARMACEUTICALS,INC./RIDGEFIELD-2012-DE-00174DE

PATIENT
  Sex: Female
  Weight: 56 kg

DRUGS (10)
  1. AMIODARONE HCL [Concomitant]
     Dosage: 200 MG
     Dates: start: 20111215, end: 20111222
  2. PANTOPRAZOLE [Concomitant]
     Dosage: 20 MG
     Dates: start: 20111215, end: 20111222
  3. PRADAXA [Suspect]
     Indication: REVERSIBLE ISCHAEMIC NEUROLOGICAL DEFICIT
  4. PRADAXA [Suspect]
     Indication: ATRIAL FIBRILLATION
     Dosage: 220 MG
     Dates: start: 20111221, end: 20111225
  5. METOPROLOL SUCCINATE [Concomitant]
     Dosage: 95 MG
  6. DIGITOXIN TAB [Concomitant]
     Dosage: 0.07 MG
     Dates: start: 20111215, end: 20111222
  7. METHIMAZOLE [Concomitant]
     Dosage: 10 MG
     Dates: start: 20111215, end: 20111222
  8. TORSEMIDE [Concomitant]
     Dosage: 10 MG
     Dates: start: 20111215, end: 20111222
  9. AMANTADINE HCL [Concomitant]
     Dosage: 100 MG
     Dates: start: 20111215, end: 20111222
  10. TRIMIPRAMINE MALEATE [Concomitant]
     Dosage: 50 MG

REACTIONS (1)
  - SUBDURAL HAEMATOMA [None]
